FAERS Safety Report 25257311 (Version 2)
Quarter: 2025Q3

REPORT INFORMATION
  Report Type: Spontaneous
  Country: US (occurrence: US)
  Receive Date: 20250430
  Receipt Date: 20250704
  Transmission Date: 20251021
  Serious: No
  Sender: BIOGEN
  Company Number: US-BIOGEN-2025BI01309225

PATIENT
  Sex: Male

DRUGS (1)
  1. TECFIDERA [Suspect]
     Active Substance: DIMETHYL FUMARATE
     Indication: Multiple sclerosis
     Route: 050
     Dates: start: 201309, end: 2023

REACTIONS (3)
  - Multiple sclerosis [Unknown]
  - Gastrointestinal disorder [Unknown]
  - Benign pancreatic neoplasm [Unknown]

NARRATIVE: CASE EVENT DATE: 20220101
